FAERS Safety Report 7077255-0 (Version None)
Quarter: 2010Q4

REPORT INFORMATION
  Report Type: 
  Country: None (occurrence: None)
  Receive Date: 20101101
  Receipt Date: 20101019
  Transmission Date: 20110411
  Serious: Yes (Death)
  Sender: FDA-Public Use
  Company Number: US-MYLANLABS-2010S1019347

PATIENT
  Sex: Female

DRUGS (2)
  1. FENTANYL [Suspect]
     Indication: FIBROMYALGIA
     Dosage: CHANGED Q.72 HOURS.
     Route: 062
     Dates: start: 20050317, end: 20050319
  2. DARVOCET [Concomitant]

REACTIONS (2)
  - NARCOTIC INTOXICATION [None]
  - OVERDOSE [None]
